FAERS Safety Report 10016422 (Version 1)
Quarter: 2014Q1

REPORT INFORMATION
  Report Type: Spontaneous
  Country: GB (occurrence: GB)
  Receive Date: 20140317
  Receipt Date: 20140317
  Transmission Date: 20141002
  Serious: Yes (Other)
  Sender: FDA-Public Use
  Company Number: GB-WATSON-2014-04604

PATIENT
  Age: 25 Year
  Sex: Female
  Weight: 79 kg

DRUGS (6)
  1. SERTRALINE HYDROCHLORIDE (UNKNOWN) [Suspect]
     Indication: DEPRESSION
     Dosage: 50 MG, DAILY
     Route: 065
     Dates: start: 20130321
  2. VENLAFAXINE [Suspect]
     Indication: DEPRESSION
     Dosage: 75 MG, UNK
     Route: 065
  3. VENLAFAXINE [Suspect]
     Dosage: 225 MG, DAILY
     Route: 065
  4. VENLAFAXINE [Suspect]
     Dosage: 150 MG, UNK
     Route: 065
  5. VENLAFAXINE [Suspect]
     Dosage: 75 MG, UNK
     Route: 065
     Dates: start: 20120515
  6. VENLAFAXINE [Suspect]
     Dosage: UNK
     Route: 065
     Dates: end: 20130405

REACTIONS (2)
  - Pre-eclampsia [Unknown]
  - Drug withdrawal syndrome [Unknown]
